FAERS Safety Report 8027783-6 (Version None)
Quarter: 2012Q1

REPORT INFORMATION
  Report Type: 
  Country: None (occurrence: None)
  Receive Date: 20120106
  Receipt Date: 20111229
  Transmission Date: 20120608
  Serious: Yes (Disabling)
  Sender: FDA-Public Use
  Company Number: IT-B.I. PHARMACEUTICALS,INC./RIDGEFIELD-2011-IT-00335IT

PATIENT
  Sex: Male

DRUGS (2)
  1. TIOPRONIN [Suspect]
     Dates: start: 20101022
  2. FLUTICASONE FUROATE [Suspect]

REACTIONS (1)
  - TACHYARRHYTHMIA [None]
